FAERS Safety Report 11235972 (Version 1)
Quarter: 2015Q3

REPORT INFORMATION
  Report Type: Report from Study
  Country: US (occurrence: US)
  Receive Date: 20150702
  Receipt Date: 20150702
  Transmission Date: 20151125
  Serious: Yes (Hospitalization)
  Sender: FDA-Public Use
  Company Number: US-MALLINCKRODT-T201503201

PATIENT
  Sex: Female

DRUGS (1)
  1. REPOSITORY CORTICOTROPIN INJECTION [Suspect]
     Active Substance: CORTICOTROPIN
     Indication: DERMATOMYOSITIS
     Dosage: 80 UNITS/TWICE PER WEEK
     Route: 058
     Dates: start: 20150507, end: 20150603

REACTIONS (2)
  - Condition aggravated [Unknown]
  - Drug ineffective [Unknown]
